FAERS Safety Report 8330475-7 (Version None)
Quarter: 2012Q2

REPORT INFORMATION
  Report Type: 
  Country: None (occurrence: None)
  Receive Date: 20120502
  Receipt Date: 20120402
  Transmission Date: 20120825
  Serious: No
  Sender: FDA-Public Use
  Company Number: US-AMGEN-USASP2012021053

PATIENT
  Age: 63 Year
  Sex: Female

DRUGS (6)
  1. SERTRALINE HYDROCHLORIDE [Concomitant]
     Dosage: UNK MG, UNK
  2. LABETALOL HCL [Concomitant]
     Dosage: UNK MG, UNK
  3. ENBREL [Suspect]
     Indication: RHEUMATOID ARTHRITIS
     Dosage: 50 MG, QWK
     Dates: start: 20120330
  4. FOLIC ACID [Concomitant]
     Dosage: UNK MG, UNK
  5. FUROSEMIDE [Concomitant]
     Dosage: UNK MG, UNK
  6. PROLIA [Concomitant]
     Dosage: UNK

REACTIONS (3)
  - EYE PRURITUS [None]
  - OCULAR HYPERAEMIA [None]
  - EYE SWELLING [None]
